FAERS Safety Report 9882456 (Version 1)
Quarter: 2014Q1

REPORT INFORMATION
  Report Type: Spontaneous
  Country: US (occurrence: US)
  Receive Date: 20140207
  Receipt Date: 20140207
  Transmission Date: 20141002
  Serious: Yes (Death, Other)
  Sender: FDA-Public Use
  Company Number: US-PFIZER INC-2014034586

PATIENT
  Age: 56 Year
  Sex: Female

DRUGS (1)
  1. HEPARIN SODIUM [Suspect]
     Dosage: UNK

REACTIONS (2)
  - Haemorrhage intracranial [Fatal]
  - Heparin-induced thrombocytopenia [Unknown]
